FAERS Safety Report 8233579-2 (Version None)
Quarter: 2012Q1

REPORT INFORMATION
  Report Type: 
  Country: None (occurrence: None)
  Receive Date: 20120326
  Receipt Date: 20120315
  Transmission Date: 20120608
  Serious: Yes (Disabling, Other)
  Sender: FDA-Public Use
  Company Number: PHHY2012IT014276

PATIENT
  Sex: Male

DRUGS (2)
  1. EXJADE [Suspect]
     Indication: CHELATION THERAPY
     Dosage: 1500 MG, DAILY
     Route: 048
     Dates: start: 20081013, end: 20120114
  2. EXJADE [Suspect]
     Indication: THALASSAEMIA BETA

REACTIONS (4)
  - BONE SWELLING [None]
  - ARTHRALGIA [None]
  - FATIGUE [None]
  - ABASIA [None]
